FAERS Safety Report 8205369-8 (Version None)
Quarter: 2012Q1

REPORT INFORMATION
  Report Type: 
  Country: None (occurrence: None)
  Receive Date: 20120313
  Receipt Date: 20120229
  Transmission Date: 20120608
  Serious: Yes (Other)
  Sender: FDA-Public Use
  Company Number: US-VALEANT-2012VX001058

PATIENT
  Age: 43 Year
  Sex: Male

DRUGS (3)
  1. HYDROQUINONE/GLYCOLIC ACID [Suspect]
     Route: 055
  2. IDARUBICIN HCL [Concomitant]
     Route: 065
  3. CYTARABINE [Concomitant]
     Route: 065

REACTIONS (5)
  - ACUTE MYELOID LEUKAEMIA [None]
  - PANCYTOPENIA [None]
  - CYTOGENETIC ABNORMALITY [None]
  - MYELODYSPLASTIC SYNDROME [None]
  - DYSPLASIA [None]
